FAERS Safety Report 9516872 (Version 1)
Quarter: 2013Q1

REPORT INFORMATION
  Report Type: Spontaneous
  Country: US (occurrence: None)
  Receive Date: 20130305
  Receipt Date: 20130305
  Transmission Date: 20140127
  Serious: Yes (Other)
  Sender: FDA-Public Use
  Company Number: 163-21880-12120608

PATIENT
  Age: 68 Year
  Sex: Female
  Weight: 59.88 kg

DRUGS (6)
  1. REVLIMID (LENALIDOMIDE) (25 MILLIGRAM CAPSULES) [Suspect]
     Indication: PLASMA CELL MYELOMA
     Dosage: 14 IN 21 D
     Route: 048
     Dates: start: 20121030, end: 20121103
  2. ACYCLOVIR (ACICLOVIR) (ACICLOVIR) [Concomitant]
  3. CARVEDILOL (CARVEDILOL) [Concomitant]
  4. OXYCODO0NE /APAP (OXYCODONE/APAP) [Concomitant]
  5. ASPIRIN (ACETYLSALICYLIC ACID) [Concomitant]
  6. VELCADE (BORTEZOMIB) [Concomitant]

REACTIONS (3)
  - Dehydration [None]
  - Diarrhoea [None]
  - Nausea [None]
